FAERS Safety Report 5901546-7 (Version None)
Quarter: 2008Q3

REPORT INFORMATION
  Report Type: 
  Country: None (occurrence: None)
  Receive Date: 20080926
  Receipt Date: 20080926
  Transmission Date: 20090109
  Serious: Yes (Hospitalization)
  Sender: FDA-Public Use
  Company Number: None

PATIENT
  Sex: Female
  Weight: 66.5 kg

DRUGS (3)
  1. CISPLATIN [Suspect]
     Dosage: 54 MG
  2. ERBITUX [Suspect]
     Dosage: 450 MG
  3. IRINOTECAN HCL [Suspect]
     Dosage: 120 MG

REACTIONS (4)
  - DIARRHOEA [None]
  - HYPOKALAEMIA [None]
  - HYPOMAGNESAEMIA [None]
  - SUDDEN DEATH [None]
